FAERS Safety Report 9301537 (Version 1)
Quarter: 2013Q2

REPORT INFORMATION
  Report Type: Spontaneous
  Country: US (occurrence: None)
  Receive Date: 20130520
  Receipt Date: 20130520
  Transmission Date: 20140414
  Serious: Yes (Hospitalization)
  Sender: FDA-Public Use
  Company Number: None

PATIENT
  Age: 56 Year
  Sex: Male
  Weight: 64.86 kg

DRUGS (2)
  1. VELCADE (BORTEZOMIB) [Suspect]
     Indication: RENAL CELL CARCINOMA
     Route: 042
     Dates: start: 20121114
  2. BEVACIZUMAB (AVASTIN) [Suspect]
     Indication: RENAL CELL CARCINOMA
     Route: 042
     Dates: start: 20121107

REACTIONS (7)
  - Otorrhoea [None]
  - Ear haemorrhage [None]
  - Impaired healing [None]
  - Glomus jugulare tumour [None]
  - Neoplasm progression [None]
  - Soft tissue injury [None]
  - Metastatic renal cell carcinoma [None]
